FAERS Safety Report 9398434 (Version 1)
Quarter: 2013Q3

REPORT INFORMATION
  Report Type: Spontaneous
  Country: US (occurrence: US)
  Receive Date: 20130712
  Receipt Date: 20130712
  Transmission Date: 20140515
  Serious: No
  Sender: FDA-Public Use
  Company Number: US-GLAXOSMITHKLINE-A1021691A

PATIENT
  Age: 26 Year
  Sex: Female

DRUGS (3)
  1. FLOVENT [Suspect]
     Indication: ASTHMA
     Route: 055
  2. VENTOLIN [Suspect]
     Indication: ASTHMA
     Route: 055
  3. MAXAIR [Suspect]
     Indication: ASTHMA
     Route: 055

REACTIONS (5)
  - Chest discomfort [Unknown]
  - Anxiety [Unknown]
  - Depressed mood [Unknown]
  - Hypersensitivity [Unknown]
  - Adverse drug reaction [Unknown]
